FAERS Safety Report 19194203 (Version 1)
Quarter: 2021Q2

REPORT INFORMATION
  Report Type: Spontaneous
  Country: SE (occurrence: SE)
  Receive Date: 20210429
  Receipt Date: 20210429
  Transmission Date: 20210717
  Serious: Yes (Disabling)
  Sender: FDA-Public Use
  Company Number: SE-TEVA-2021-SE-1905773

PATIENT
  Age: 82 Year
  Sex: Female
  Weight: 52 kg

DRUGS (4)
  1. ATORVASTATIN TEVA 40 MG FILMDRAGERAD TABLETT [Suspect]
     Active Substance: ATORVASTATIN
     Route: 065
     Dates: start: 20180903, end: 201902
  2. METOPROLOL. [Concomitant]
     Active Substance: METOPROLOL
  3. RAMIPRIL. [Concomitant]
     Active Substance: RAMIPRIL
  4. TROMBYL [Concomitant]
     Active Substance: ASPIRIN

REACTIONS (4)
  - Muscle atrophy [Recovered/Resolved with Sequelae]
  - Confusional state [Recovered/Resolved with Sequelae]
  - Cerebrovascular accident [Recovered/Resolved with Sequelae]
  - Hypersomnia [Recovered/Resolved with Sequelae]

NARRATIVE: CASE EVENT DATE: 201809
